FAERS Safety Report 19002051 (Version 3)
Quarter: 2021Q2

REPORT INFORMATION
  Report Type: Report from Study
  Country: DE (occurrence: DE)
  Receive Date: 20210312
  Receipt Date: 20210505
  Transmission Date: 20210717
  Serious: Yes (Death, Hospitalization)
  Sender: FDA-Public Use
  Company Number: NVSC2021DE052488

PATIENT
  Sex: Female

DRUGS (3)
  1. FULVESTRANT. [Suspect]
     Active Substance: FULVESTRANT
     Indication: BREAST CANCER METASTATIC
     Dosage: 500 MG, Q4W
     Route: 030
     Dates: start: 20190304, end: 20200828
  2. KISQALI [Suspect]
     Active Substance: RIBOCICLIB
     Indication: HER2 NEGATIVE BREAST CANCER
     Dosage: 600 MG, SCHEMA 21 DAYS INTAKE, 7 DAYS PAUSE
     Route: 048
     Dates: start: 20190304, end: 20200512
  3. FULVESTRANT. [Suspect]
     Active Substance: FULVESTRANT
     Dosage: 500 MG, Q4W
     Route: 030
     Dates: start: 20190304, end: 20200512

REACTIONS (4)
  - Breast cancer metastatic [Fatal]
  - Malignant neoplasm progression [Fatal]
  - Cardiac failure [Unknown]
  - Dyspnoea [Unknown]

NARRATIVE: CASE EVENT DATE: 20210301
